FAERS Safety Report 18657967 (Version 1)
Quarter: 2020Q4

REPORT INFORMATION
  Report Type: Report from Study
  Country: IS (occurrence: IS)
  Receive Date: 20201224
  Receipt Date: 20201224
  Transmission Date: 20210114
  Serious: Yes (Hospitalization, Other)
  Sender: FDA-Public Use
  Company Number: IS-JNJFOC-20201237238

PATIENT

DRUGS (4)
  1. REMICADE [Suspect]
     Active Substance: INFLIXIMAB
     Indication: ARTHRITIS REACTIVE
     Route: 042
  2. ADALIMUMAB [Suspect]
     Active Substance: ADALIMUMAB
     Indication: ARTHRITIS REACTIVE
     Route: 065
  3. SIMPONI [Suspect]
     Active Substance: GOLIMUMAB
     Indication: ARTHRITIS REACTIVE
     Route: 058
  4. ETANERCEPT [Suspect]
     Active Substance: ETANERCEPT
     Indication: ARTHRITIS REACTIVE
     Dosage: 25 MG TWICE A WEEK IN 3 CASES, 50 MG ONCE A WEEK IN 2 CASES, AND AN UNKNOWN DOSE IN 1 CASE
     Route: 065

REACTIONS (11)
  - Appendicitis perforated [Unknown]
  - Appendicitis [Unknown]
  - Pyelonephritis [Unknown]
  - Meningitis viral [Unknown]
  - Pneumonia viral [Unknown]
  - Off label use [Unknown]
  - Product use in unapproved indication [Unknown]
  - Adverse event [Unknown]
  - Hypersensitivity [Unknown]
  - Prostate cancer metastatic [Unknown]
  - Drug ineffective [Unknown]
